FAERS Safety Report 19371204 (Version 3)
Quarter: 2021Q3

REPORT INFORMATION
  Report Type: Spontaneous
  Country: FR (occurrence: FR)
  Receive Date: 20210604
  Receipt Date: 20210715
  Transmission Date: 20211014
  Serious: Yes (Other)
  Sender: FDA-Public Use
  Company Number: FR-AMGEN-FRANI2021041455

PATIENT
  Age: 57 Year
  Sex: Female
  Weight: 50.2 kg

DRUGS (17)
  1. CARBOPLATIN. [Concomitant]
     Active Substance: CARBOPLATIN
     Indication: NEOPLASM MALIGNANT
     Dosage: MEDICATION DOSE 420 (UNIT NOT SPECIFIED)
  2. PEMETREXED. [Concomitant]
     Active Substance: PEMETREXED
     Indication: NEOPLASM MALIGNANT
     Dosage: MEDICATION DOSE 725 (UNIT NOT SEPCIFIED)
  3. PACLITAXEL. [Suspect]
     Active Substance: PACLITAXEL
     Indication: NON-SMALL CELL LUNG CANCER METASTATIC
  4. PARACETAMOL [Concomitant]
     Active Substance: ACETAMINOPHEN
     Dosage: UNK
     Dates: start: 20190805
  5. BEVACIZUMAB. [Suspect]
     Active Substance: BEVACIZUMAB
     Indication: NON-SMALL CELL LUNG CANCER METASTATIC
  6. XGEVA [Suspect]
     Active Substance: DENOSUMAB
     Indication: PRODUCT USED FOR UNKNOWN INDICATION
     Dosage: UNK
     Route: 065
  7. PACLITAXEL. [Suspect]
     Active Substance: PACLITAXEL
     Indication: NON-SMALL CELL LUNG CANCER
     Dosage: UNK
     Route: 065
     Dates: start: 20200409
  8. ELIQUIS [Concomitant]
     Active Substance: APIXABAN
     Dosage: UNK, QD
     Dates: start: 20200703
  9. TRAMADOL. [Concomitant]
     Active Substance: TRAMADOL
     Dosage: UNK
  10. FLECAIN [Concomitant]
     Active Substance: FLECAINIDE ACETATE
     Dosage: UNK, QD
  11. BEVACIZUMAB. [Suspect]
     Active Substance: BEVACIZUMAB
     Indication: NON-SMALL CELL LUNG CANCER
     Dosage: 362.5 UNK
     Route: 042
     Dates: start: 20200409
  12. PROLIA [Suspect]
     Active Substance: DENOSUMAB
     Indication: PRODUCT USED FOR UNKNOWN INDICATION
     Dosage: UNK
     Route: 065
     Dates: start: 20190211
  13. ATEZOLIZUMAB. [Suspect]
     Active Substance: ATEZOLIZUMAB
     Indication: NON-SMALL CELL LUNG CANCER METASTATIC
     Dosage: 1200 MILLIGRAM, Q3WK
     Route: 042
     Dates: start: 20190603
  14. ATEZOLIZUMAB. [Suspect]
     Active Substance: ATEZOLIZUMAB
     Indication: NON-SMALL CELL LUNG CANCER
     Dosage: 1200 MILLIGRAM, Q3WK
     Route: 042
     Dates: start: 20190513
  15. CACIT D3 [Concomitant]
     Active Substance: CALCIUM\CHOLECALCIFEROL
     Dosage: UNK
     Dates: start: 20190415
  16. BIPROFENID [Concomitant]
     Active Substance: KETOPROFEN
     Dosage: UNK
     Dates: start: 20200402, end: 20200404
  17. CHOLECALCIFEROL [Concomitant]
     Active Substance: CHOLECALCIFEROL
     Dosage: UNK, QD
     Dates: start: 20190211

REACTIONS (6)
  - Osteonecrosis of jaw [Recovered/Resolved]
  - Cancer pain [Unknown]
  - Anaemia [Recovered/Resolved]
  - Thrombosis [Recovering/Resolving]
  - Aphthous ulcer [Recovered/Resolved]
  - Mucosal inflammation [Recovered/Resolved]

NARRATIVE: CASE EVENT DATE: 20190415
